FAERS Safety Report 8248721-7 (Version None)
Quarter: 2012Q1

REPORT INFORMATION
  Report Type: 
  Country: None (occurrence: None)
  Receive Date: 20120331
  Receipt Date: 20120327
  Transmission Date: 20120608
  Serious: Yes (Hospitalization, Other)
  Sender: FDA-Public Use
  Company Number: PHHY2012FR016895

PATIENT
  Sex: Male
  Weight: 67 kg

DRUGS (9)
  1. AMLODIPINE [Concomitant]
     Indication: HYPERTENSION
     Dosage: 5 MG, AT 1DF QD
     Route: 048
  2. LANSOPRAZOLE [Concomitant]
     Indication: ABDOMINAL PAIN UPPER
     Dosage: 15 MG, 1DF QD
  3. LORAZEPAM [Concomitant]
     Indication: INSOMNIA
     Dosage: 1 MG, AT 1.5 DF ON EVENING
     Route: 048
  4. SPIRIVA [Concomitant]
     Indication: ASTHMA
     Dosage: 18 MCG,AT 1DF QD
     Route: 048
  5. SANDOSTATIN LAR [Concomitant]
     Indication: ENDOCRINE NEOPLASM
     Dosage: 30 MG, UNK
     Route: 030
     Dates: start: 20110101
  6. SIMVASTATIN [Concomitant]
     Indication: HYPERCHOLESTEROLAEMIA
     Dosage: 20 MG, AT 1DF QD
     Route: 048
  7. ENALAPRIL [Concomitant]
     Indication: HYPERTENSION
     Dosage: 20 MG, AT 1DF QD
     Route: 048
  8. FLUTICASONE PROPIONATE [Concomitant]
     Indication: ASTHMA
     Dosage: 250 MCG AT 1DF
  9. AFINITOR [Suspect]
     Indication: ENDOCRINE NEOPLASM
     Dosage: 10 MG, DAILY
     Route: 048
     Dates: start: 20110721, end: 20111029

REACTIONS (6)
  - OROPHARYNGEAL DISCOMFORT [None]
  - NASAL OEDEMA [None]
  - DYSPNOEA [None]
  - BRONCHOSPASM [None]
  - CIRCUMORAL OEDEMA [None]
  - ANAPHYLACTIC SHOCK [None]
